FAERS Safety Report 10380670 (Version 1)
Quarter: 2014Q3

REPORT INFORMATION
  Report Type: Spontaneous
  Country: VE (occurrence: VE)
  Receive Date: 20140813
  Receipt Date: 20140813
  Transmission Date: 20150326
  Serious: Yes (Other)
  Sender: FDA-Public Use
  Company Number: PHHY2014VE099385

PATIENT
  Age: 89 Year
  Sex: Female

DRUGS (7)
  1. COMBAREN [Suspect]
     Active Substance: CODEINE PHOSPHATE\DICLOFENAC SODIUM
     Indication: PAIN
     Dosage: 50 MG, DAILY
     Route: 048
     Dates: start: 2009, end: 201406
  2. CARVEDILOL. [Concomitant]
     Active Substance: CARVEDILOL
     Indication: CARDIAC FAILURE
     Dosage: 12.5 MG, UNK
  3. ISMO [Concomitant]
     Active Substance: ISOSORBIDE MONONITRATE
     Indication: CARDIAC FAILURE
     Dosage: 20 MG, UNK
  4. LOSARTAN [Concomitant]
     Active Substance: LOSARTAN
     Indication: HYPERTENSION
     Dosage: 50 MG, UNK
  5. CLOPID [Concomitant]
     Indication: CARDIAC DISORDER
     Dosage: 75 MG, UNK
  6. OMEPRAZOLE. [Concomitant]
     Active Substance: OMEPRAZOLE
     Indication: PROPHYLAXIS AGAINST GASTROINTESTINAL ULCER
     Dosage: 20 MG, UNK
  7. BONADOXIN [Concomitant]
     Indication: VOMITING
     Dosage: 25 MG, UNK

REACTIONS (5)
  - Cardiovascular disorder [Unknown]
  - Neuropathy peripheral [Unknown]
  - Pain [Unknown]
  - Spinal cord compression [Unknown]
  - Blood pressure increased [Unknown]

NARRATIVE: CASE EVENT DATE: 201406
